FAERS Safety Report 5956340-8 (Version None)
Quarter: 2008Q4

REPORT INFORMATION
  Report Type: 
  Country: None (occurrence: None)
  Receive Date: 20081118
  Receipt Date: 20081114
  Transmission Date: 20090506
  Serious: Yes (Life-Threatening, Other)
  Sender: FDA-Public Use
  Company Number: PHHY2008CL28281

PATIENT
  Age: 86 Year
  Sex: Female

DRUGS (1)
  1. EXFORGE [Suspect]
     Indication: HYPERTENSION
     Dosage: 320 MG VAL+10 MG AMLO, 1 TABLET/DAY
     Dates: start: 20080901

REACTIONS (2)
  - LIVER DISORDER [None]
  - TERMINAL STATE [None]
